FAERS Safety Report 4868790-1 (Version None)
Quarter: 2005Q4

REPORT INFORMATION
  Report Type: 
  Country: None (occurrence: None)
  Receive Date: 20051223
  Receipt Date: 20051214
  Transmission Date: 20060501
  Serious: Yes (Life-Threatening, Hospitalization, Other)
  Sender: FDA-Public Use
  Company Number: 2005125858

PATIENT
  Age: 85 Year
  Sex: Male
  Weight: 85 kg

DRUGS (6)
  1. LYRICA [Suspect]
     Indication: POLYNEUROPATHY
     Dosage: ORAL
     Route: 048
     Dates: start: 20050701, end: 20050725
  2. SORTIS (ATORVASTATIN) [Concomitant]
  3. ISCOVER (CLOPIDOGREL SULFATE) [Concomitant]
  4. ACETYLSALICYLIC ACID SRT [Concomitant]
  5. RAMIPRIL [Concomitant]
  6. BELOC-ZOK MITE (METOPROLOL SUCCINATE) [Concomitant]

REACTIONS (8)
  - BRADYARRHYTHMIA [None]
  - CARDIAC ARREST [None]
  - FATIGUE [None]
  - IMPLANT SITE OEDEMA [None]
  - PNEUMONIA ASPIRATION [None]
  - PSYCHOTIC DISORDER [None]
  - SLEEP DISORDER [None]
  - VENTRICULAR FIBRILLATION [None]
